FAERS Safety Report 16642810 (Version 1)
Quarter: 2019Q3

REPORT INFORMATION
  Report Type: Spontaneous
  Country: US (occurrence: US)
  Receive Date: 20190614
  Receipt Date: 20190614
  Transmission Date: 20191004
  Serious: Yes (Death, Hospitalization)
  Sender: FDA-Public Use
  Company Number: None

PATIENT
  Age: 16 Year
  Sex: Male
  Weight: 104.1 kg

DRUGS (3)
  1. ONCASPAR [Suspect]
     Active Substance: PEGASPARGASE
     Dates: end: 20190521
  2. VINCRISTINE SULFATE. [Suspect]
     Active Substance: VINCRISTINE SULFATE
     Dates: end: 20190530
  3. METHOTREXATE. [Suspect]
     Active Substance: METHOTREXATE
     Dates: end: 20190530

REACTIONS (12)
  - Renal failure [None]
  - Disseminated intravascular coagulation [None]
  - Colitis [None]
  - Pancreatitis [None]
  - Dialysis [None]
  - Lethargy [None]
  - Metabolic acidosis [None]
  - Embolism [None]
  - Pulmonary haemorrhage [None]
  - Multiple organ dysfunction syndrome [None]
  - Intestinal ischaemia [None]
  - Hyperkalaemia [None]

NARRATIVE: CASE EVENT DATE: 20190603
